FAERS Safety Report 24738489 (Version 1)
Quarter: 2024Q4

REPORT INFORMATION
  Report Type: Spontaneous
  Country: US (occurrence: US)
  Receive Date: 20241216
  Receipt Date: 20241216
  Transmission Date: 20250114
  Serious: No
  Sender: FRESENIUS MEDICAL CARE
  Company Number: US-FMCRTG-FMC-2412-001566

PATIENT
  Age: 39 Year
  Sex: Male
  Weight: 66 kg

DRUGS (4)
  1. DELFLEX WITH DEXTROSE 1.5% LOW MAGNESIUM LOW CALCIUM [Suspect]
     Active Substance: CALCIUM CHLORIDE\DEXTROSE\MAGNESIUM CHLORIDE\SODIUM CHLORIDE\SODIUM LACTATE
     Indication: End stage renal disease
     Dosage: 7 DAYS-A-WEEK, CA = 2.5 MEQ/L, MG = 0.5 MEQ/L DEXTROSE, EXCHANGES = 4, FILL VOLUME = 2000 ML, DWELL
     Route: 033
  2. DELFLEX WITH DEXTROSE 2.5% LOW MAGNESIUM LOW CALCIUM [Suspect]
     Active Substance: CALCIUM CHLORIDE\DEXTROSE\MAGNESIUM CHLORIDE\SODIUM CHLORIDE\SODIUM LACTATE
     Indication: End stage renal disease
     Dosage: 7 DAYS-A-WEEK, CA = 2.5 MEQ/L, MG = 0.5 MEQ/L DEXTROSE, EXCHANGES = 4, FILL VOLUME = 2000 ML, DWELL
     Route: 033
  3. DELFLEX WITH DEXTROSE 4.25% LOW MAGNESIUM LOW CALCIUM [Suspect]
     Active Substance: CALCIUM CHLORIDE\DEXTROSE\MAGNESIUM CHLORIDE\SODIUM CHLORIDE\SODIUM LACTATE
     Indication: End stage renal disease
     Dosage: 7 DAYS-A-WEEK, CA = 2.5 MEQ/L, MG = 0.5 MEQ/L DEXTROSE, EXCHANGES = 4, FILL VOLUME = 2000 ML, DWELL
     Route: 033
  4. INSULIN NOS [Concomitant]
     Active Substance: INSULIN NOS

REACTIONS (2)
  - Blood glucose decreased [Recovered/Resolved]
  - Blood pressure increased [Recovered/Resolved]
